FAERS Safety Report 5155857-6 (Version None)
Quarter: 2006Q4

REPORT INFORMATION
  Report Type: 
  Country: None (occurrence: None)
  Receive Date: 20061122
  Receipt Date: 20061115
  Transmission Date: 20070319
  Serious: Yes (Death, Other)
  Sender: FDA-Public Use
  Company Number: GB-JNJFOC-20061103747

PATIENT
  Sex: Male
  Weight: 66 kg

DRUGS (10)
  1. REMICADE [Suspect]
     Indication: RHEUMATOID ARTHRITIS
     Route: 042
  2. PREDNISOLONE [Concomitant]
     Route: 065
  3. FOLIC ACID [Concomitant]
     Route: 065
  4. HYDROXYZINE [Concomitant]
     Route: 065
  5. LANSOPRAZOLE [Concomitant]
     Route: 065
  6. METHOTREXATE [Concomitant]
     Route: 065
  7. ACETAMINOPHEN [Concomitant]
     Route: 065
  8. PENICILLIN [Concomitant]
     Route: 065
  9. RESIDRONATE [Concomitant]
     Route: 065
  10. SULFASALAZINE [Concomitant]
     Route: 065

REACTIONS (1)
  - DEATH [None]
